FAERS Safety Report 16702274 (Version 1)
Quarter: 2020Q3

REPORT INFORMATION
  Report Type: Spontaneous
  Country: US (occurrence: US)
  Receive Date: 20190627
  Receipt Date: 20190627
  Transmission Date: 20201104
  Serious: Yes (Hospitalization)
  Sender: FDA-Public Use
  Company Number: None

PATIENT
  Age: 67 Year
  Sex: Female
  Weight: 66 kg

DRUGS (12)
  1. DICYCLOMINE [Concomitant]
     Active Substance: DICYCLOMINE HYDROCHLORIDE
  2. LEVOTHYROXINE. [Concomitant]
     Active Substance: LEVOTHYROXINE
  3. OMEPRAZOLE. [Concomitant]
     Active Substance: OMEPRAZOLE
  4. OBETICHOLIC ACID [Suspect]
     Active Substance: OBETICHOLIC ACID
  5. ACETAMINOPHEN. [Concomitant]
     Active Substance: ACETAMINOPHEN
     Dosage: ?          OTHER FREQUENCY:Q6HRS;?
  6. FOLIC ACID. [Concomitant]
     Active Substance: FOLIC ACID
  7. CALCIUM CARBONATE?VITAMIN [Concomitant]
  8. RIFAXIMIN. [Concomitant]
     Active Substance: RIFAXIMIN
  9. FERROUS SULFATE. [Suspect]
     Active Substance: FERROUS SULFATE
  10. URSODIOL. [Concomitant]
     Active Substance: URSODIOL
  11. OCALIVA [Concomitant]
     Active Substance: OBETICHOLIC ACID
  12. MACITENTAN [Concomitant]
     Active Substance: MACITENTAN

REACTIONS (5)
  - Cardiac failure acute [None]
  - Acute respiratory failure [None]
  - Peripheral swelling [None]
  - Pleural effusion [None]
  - Hypoxia [None]

NARRATIVE: CASE EVENT DATE: 20190313
